FAERS Safety Report 9966542 (Version 2)
Quarter: 2014Q1

REPORT INFORMATION
  Report Type: Report from Study
  Country: US (occurrence: US)
  Receive Date: 20140305
  Receipt Date: 20140305
  Transmission Date: 20141002
  Serious: Yes (Other)
  Sender: FDA-Public Use
  Company Number: US-ABBVIE-13P-163-1110139-00

PATIENT
  Age: 19 Year
  Sex: Female
  Weight: 101.7 kg

DRUGS (7)
  1. HUMIRA [Suspect]
     Indication: COLITIS ULCERATIVE
     Dates: start: 20130219, end: 20130402
  2. LIALDA [Concomitant]
     Indication: PRODUCT USED FOR UNKNOWN INDICATION
     Dosage: 4 TABLETS/DAY
     Dates: start: 20120730
  3. PREDNISONE [Concomitant]
     Indication: COLITIS ULCERATIVE
     Dosage: TAPERING DOSE
     Dates: start: 20130201
  4. PAXIL [Concomitant]
     Indication: DEPRESSION
     Dosage: 4 A DAY
     Dates: start: 20121105
  5. CALCIUM [Concomitant]
     Indication: PRODUCT USED FOR UNKNOWN INDICATION
  6. PROBIOTICS [Concomitant]
     Indication: PRODUCT USED FOR UNKNOWN INDICATION
     Dosage: VSL # - 2 CAPSULES DAILY
     Route: 048
     Dates: start: 20121105
  7. LORTAB [Concomitant]
     Indication: PRODUCT USED FOR UNKNOWN INDICATION
     Dosage: (5/500 MG) 1-2 TABLETS EVERY 4-6 HOURS AS NEEDED
     Route: 048
     Dates: start: 20130318

REACTIONS (2)
  - Drug ineffective [Not Recovered/Not Resolved]
  - Surgery [Unknown]
